FAERS Safety Report 25786825 (Version 1)
Quarter: 2025Q3

REPORT INFORMATION
  Report Type: Spontaneous
  Country: US (occurrence: US)
  Receive Date: 20250910
  Receipt Date: 20250910
  Transmission Date: 20251020
  Serious: No
  Sender: DR REDDYS
  Company Number: US-DRL-USA-USA/2025/08/013395

PATIENT
  Sex: Male

DRUGS (1)
  1. LENALIDOMIDE [Suspect]
     Active Substance: LENALIDOMIDE
     Indication: Product used for unknown indication
     Dates: start: 202502

REACTIONS (4)
  - Product substitution issue [Unknown]
  - Product substitution issue [Unknown]
  - Rash [Recovered/Resolved]
  - Paraproteinaemia [Recovering/Resolving]

NARRATIVE: CASE EVENT DATE: 20250201
